FAERS Safety Report 9525043 (Version 1)
Quarter: 2013Q1

REPORT INFORMATION
  Report Type: Spontaneous
  Country: US (occurrence: None)
  Receive Date: 20130314
  Receipt Date: 20130314
  Transmission Date: 20140127
  Serious: No
  Sender: FDA-Public Use
  Company Number: 1301USA005362

PATIENT
  Age: 60 Year
  Sex: Female

DRUGS (4)
  1. PEGINTRON (PEGINTERFERON ALFA-2B) POWDER FOR INJECTION, 120MICROGRAM [Suspect]
     Indication: HEPATITIS C
     Dosage: 120 MICROGRAM, QW
     Dates: start: 20121129
  2. VICTRELIS (BOCEPREVIR) CAPSULE, 200MG [Suspect]
     Dosage: PO
     Route: 048
  3. RIBAVIRIN (RIBAVIRIN) TABLET, 200 MG [Suspect]
     Dosage: PO
     Route: 048
  4. NEUPOGEN (FILGRASTIM) [Concomitant]

REACTIONS (7)
  - Blood count abnormal [None]
  - Influenza like illness [None]
  - Dry mouth [None]
  - Insomnia [None]
  - Adverse event [None]
  - Product quality issue [None]
  - Incorrect dose administered [None]
